FAERS Safety Report 11656708 (Version 3)
Quarter: 2016Q2

REPORT INFORMATION
  Report Type: Spontaneous
  Country: US (occurrence: US)
  Receive Date: 20151023
  Receipt Date: 20160527
  Transmission Date: 20160815
  Serious: No
  Sender: FDA-Public Use
  Company Number: US-MDT-ADR-2015-02013

PATIENT
  Age: 69 Year
  Sex: Female

DRUGS (5)
  1. BACLOFEN. [Suspect]
     Active Substance: BACLOFEN
     Route: 037
     Dates: start: 20151013
  2. BACLOFEN. [Suspect]
     Active Substance: BACLOFEN
     Dosage: 152.8MCG/DAY
     Route: 037
     Dates: start: 20151019
  3. BACLOFEN. [Suspect]
     Active Substance: BACLOFEN
     Route: 037
  4. BACLOFEN. [Suspect]
     Active Substance: BACLOFEN
     Route: 037
     Dates: start: 20151120
  5. BACLOFEN. [Suspect]
     Active Substance: BACLOFEN
     Dosage: 192.1MCG/DAY
     Route: 037
     Dates: start: 20151210

REACTIONS (4)
  - Overdose [Unknown]
  - Incorrect drug administration rate [Unknown]
  - Asthenia [Recovered/Resolved]
  - Lethargy [Recovered/Resolved]
